FAERS Safety Report 19003131 (Version 1)
Quarter: 2021Q1

REPORT INFORMATION
  Report Type: Spontaneous
  Country: DE (occurrence: DE)
  Receive Date: 20210312
  Receipt Date: 20210312
  Transmission Date: 20210420
  Serious: Yes (Hospitalization)
  Sender: FDA-Public Use
  Company Number: DE-ANIPHARMA-2021-DE-000039

PATIENT
  Age: 86 Year
  Sex: Female

DRUGS (11)
  1. ATACAND [Suspect]
     Active Substance: CANDESARTAN CILEXETIL
     Indication: HYPERTENSION
     Dosage: 8 MG QAM
     Route: 048
  2. NALOXONE+OXYCODONE [Concomitant]
     Active Substance: NALOXONE HYDROCHLORIDE\OXYCODONE HYDROCHLORIDE
     Route: 065
     Dates: start: 20210212
  3. SPIRONOLACTONE. [Suspect]
     Active Substance: SPIRONOLACTONE
     Dosage: 25 MG DAILY
     Route: 065
  4. METAMIZOLE [Concomitant]
     Active Substance: METAMIZOLE
     Dosage: 20?20?20 (60 DROPS) DAILY
     Route: 048
     Dates: start: 202101
  5. COLECALCIFEROL [Concomitant]
     Active Substance: CHOLECALCIFEROL
     Dosage: 2000 IU DAILY / 1000 IU DAILY
     Route: 065
     Dates: start: 202101
  6. PALEXIA [Suspect]
     Active Substance: TAPENTADOL HYDROCHLORIDE
     Dosage: 50 MG QAM / 50 MG QAM
     Route: 065
  7. MAGNESIUM OROTATE. [Concomitant]
     Active Substance: MAGNESIUM OROTATE
     Dosage: DF BID
     Route: 065
  8. LIXIANA [Suspect]
     Active Substance: EDOXABAN TOSYLATE
     Route: 065
  9. BACTERIA NOS [PROBIOTIC] [Suspect]
     Active Substance: PROBIOTICS NOS
     Route: 065
  10. BUDESONIDE. [Suspect]
     Active Substance: BUDESONIDE
     Dosage: 3 MG DAILY
     Route: 048
  11. LEVOTHYROXINE SODIUM. [Suspect]
     Active Substance: LEVOTHYROXINE SODIUM
     Dosage: 75 UG DAILY
     Route: 065

REACTIONS (3)
  - Gastrointestinal pain [Unknown]
  - Faeces discoloured [Unknown]
  - Diarrhoea [Recovering/Resolving]

NARRATIVE: CASE EVENT DATE: 20210111
